FAERS Safety Report 6539350-1 (Version None)
Quarter: 2010Q1

REPORT INFORMATION
  Report Type: 
  Country: None (occurrence: None)
  Receive Date: 20100115
  Receipt Date: 20100104
  Transmission Date: 20100710
  Serious: Yes (Death)
  Sender: FDA-Public Use
  Company Number: US-PFIZER INC-2010000949

PATIENT
  Age: 73 Year
  Sex: Female

DRUGS (7)
  1. ALPRAZOLAM [Suspect]
     Route: 048
  2. DOXEPIN HCL [Suspect]
     Route: 048
  3. ACETYLSALICYLIC ACID [Suspect]
     Route: 048
  4. BUTALBITAL ACETAMINOPHEN AND CAFFEINE [Suspect]
     Route: 048
  5. IRBESARTAN [Suspect]
     Route: 048
  6. EZETIMIBE [Suspect]
     Route: 048
  7. CLOPIDOGREL [Suspect]
     Route: 048

REACTIONS (4)
  - CARDIAC ARREST [None]
  - COMPLETED SUICIDE [None]
  - INTENTIONAL DRUG MISUSE [None]
  - RESPIRATORY ARREST [None]
